FAERS Safety Report 10143092 (Version 1)
Quarter: 2014Q2

REPORT INFORMATION
  Report Type: Spontaneous
  Country: US (occurrence: None)
  Receive Date: 20140429
  Receipt Date: 20140429
  Transmission Date: 20141212
  Serious: No
  Sender: FDA-Public Use
  Company Number: None

PATIENT
  Age: 60 Year
  Sex: Female

DRUGS (1)
  1. LYRICA 75 MG PFIZER [Suspect]
     Indication: PAIN
     Route: 048
     Dates: start: 20140303, end: 20140428

REACTIONS (6)
  - Fatigue [None]
  - Feeling abnormal [None]
  - Disturbance in attention [None]
  - Pain [None]
  - Drug ineffective [None]
  - Somnolence [None]
